FAERS Safety Report 11515058 (Version 1)
Quarter: 2015Q3

REPORT INFORMATION
  Report Type: Spontaneous
  Country: US (occurrence: US)
  Receive Date: 20150916
  Receipt Date: 20150916
  Transmission Date: 20151125
  Serious: Yes (Other)
  Sender: FDA-Public Use
  Company Number: US-BAXTER-2015BAX049959

PATIENT
  Sex: Male

DRUGS (1)
  1. CEFTRIAXONE AND DEXTROSE [Suspect]
     Active Substance: CEFTRIAXONE SODIUM
     Indication: PNEUMONIA
     Route: 042

REACTIONS (2)
  - Stevens-Johnson syndrome [Recovered/Resolved]
  - Obliterative bronchiolitis [Not Recovered/Not Resolved]
